FAERS Safety Report 9925112 (Version 1)
Quarter: 2014Q1

REPORT INFORMATION
  Report Type: Spontaneous
  Country: BR (occurrence: BR)
  Receive Date: 20140226
  Receipt Date: 20140226
  Transmission Date: 20141002
  Serious: Yes (Hospitalization)
  Sender: FDA-Public Use
  Company Number: BR-EISAI INC-E3810-06912-SPO-BR

PATIENT
  Age: 17 Year
  Sex: Female

DRUGS (2)
  1. PARIET (RABEPRAZOLE) [Suspect]
     Indication: GASTRITIS
     Dosage: UNKNOWN
     Route: 048
     Dates: start: 20140210, end: 20140213
  2. YAZ [Concomitant]
     Indication: CONTRACEPTION

REACTIONS (2)
  - Raynaud^s phenomenon [Not Recovered/Not Resolved]
  - Headache [Not Recovered/Not Resolved]
